FAERS Safety Report 25145992 (Version 1)
Quarter: 2025Q2

REPORT INFORMATION
  Report Type: Other
  Country: HU (occurrence: HU)
  Receive Date: 20250401
  Receipt Date: 20250401
  Transmission Date: 20250717
  Serious: Yes (Other)
  Sender: B BRAUN
  Company Number: HU-B.Braun Medical Inc.-2174055

PATIENT
  Age: 69 Year
  Sex: Male

DRUGS (1)
  1. CEFUROXIME [Suspect]
     Active Substance: CEFUROXIME
     Indication: Surgery

REACTIONS (2)
  - Macular detachment [Recovered/Resolved]
  - Off label use [Unknown]
